FAERS Safety Report 6824182-7 (Version None)
Quarter: 2010Q3

REPORT INFORMATION
  Report Type: 
  Country: None (occurrence: None)
  Receive Date: 20100708
  Receipt Date: 20061013
  Transmission Date: 20110219
  Serious: No
  Sender: FDA-Public Use
  Company Number: US-PFIZER INC-2006126600

PATIENT
  Sex: Female

DRUGS (4)
  1. CHANTIX [Suspect]
     Indication: SMOKING CESSATION THERAPY
     Dates: start: 20060818
  2. TARKA [Concomitant]
  3. PLAQUENIL [Concomitant]
  4. PREDNISONE [Concomitant]

REACTIONS (1)
  - FLATULENCE [None]
